FAERS Safety Report 17257213 (Version 1)
Quarter: 2020Q1

REPORT INFORMATION
  Report Type: Spontaneous
  Country: US (occurrence: US)
  Receive Date: 20200109
  Receipt Date: 20200109
  Transmission Date: 20200409
  Serious: No
  Sender: FDA-Public Use
  Company Number: None

PATIENT
  Age: 57 Year
  Sex: Male
  Weight: 91.8 kg

DRUGS (5)
  1. LISINOPRIL. [Concomitant]
     Active Substance: LISINOPRIL
     Dates: start: 20190611, end: 20200109
  2. NORCO [Concomitant]
     Active Substance: ACETAMINOPHEN\HYDROCODONE BITARTRATE
     Dates: start: 20191123, end: 20191201
  3. NICODERM CQ [Concomitant]
     Active Substance: NICOTINE
     Dates: start: 20190716, end: 20200109
  4. EPCLUSA [Suspect]
     Active Substance: SOFOSBUVIR\VELPATASVIR
     Indication: CHRONIC HEPATITIS C
     Route: 048
  5. ALDACTONE [Concomitant]
     Active Substance: SPIRONOLACTONE
     Dates: start: 20191227, end: 20200109

REACTIONS (3)
  - Treatment failure [None]
  - Viral load abnormal [None]
  - Hepatitis C [None]

NARRATIVE: CASE EVENT DATE: 20191230
